FAERS Safety Report 15825183 (Version 1)
Quarter: 2019Q1

REPORT INFORMATION
  Report Type: Spontaneous
  Country: US (occurrence: US)
  Receive Date: 20190114
  Receipt Date: 20190114
  Transmission Date: 20190417
  Serious: Yes (Hospitalization, Other)
  Sender: FDA-Public Use
  Company Number: None

PATIENT
  Age: 25 Year
  Sex: Female
  Weight: 49.5 kg

DRUGS (7)
  1. RELPAX [Concomitant]
     Active Substance: ELETRIPTAN HYDROBROMIDE
  2. DULOXETINE. [Concomitant]
     Active Substance: DULOXETINE
  3. BOTOX [Concomitant]
     Active Substance: ONABOTULINUMTOXINA
  4. TOPIRAMATE. [Concomitant]
     Active Substance: TOPIRAMATE
  5. RIBOFAVIN [Concomitant]
  6. MAGNESIUM [Concomitant]
     Active Substance: MAGNESIUM
  7. TROKENDI XR [Suspect]
     Active Substance: TOPIRAMATE
     Indication: MIGRAINE
     Dosage: ?          QUANTITY:1 CAPSULE(S);?
     Route: 048
     Dates: start: 20180901, end: 20181221

REACTIONS (5)
  - Heart rate increased [None]
  - Tremor [None]
  - Angina pectoris [None]
  - Dyspnoea [None]
  - Hyperhidrosis [None]

NARRATIVE: CASE EVENT DATE: 20181029
